FAERS Safety Report 9216989 (Version 2)
Quarter: 2013Q2

REPORT INFORMATION
  Report Type: Spontaneous
  Country: US (occurrence: None)
  Receive Date: 20130403
  Receipt Date: 20130425
  Transmission Date: 20140414
  Serious: Yes (Hospitalization, Other)
  Sender: FDA-Public Use
  Company Number: CABO-13002481

PATIENT
  Age: 34 Year
  Sex: Male
  Weight: 73.1 kg

DRUGS (8)
  1. COMETRIQ [Suspect]
     Indication: THYROID CANCER
     Route: 048
     Dates: start: 20130219, end: 20130226
  2. PREDNISONE (PREDNISONE) [Concomitant]
  3. MORPHINE [Concomitant]
  4. THYROXINE (LEVOTHYROXINE SODIUM) [Concomitant]
  5. FLUDROCORTISONE ACETATE (FLUDROCORTISONE ACETATE) [Concomitant]
  6. VENLAFAXINE (VENLAFAXINE) [Concomitant]
  7. ZALEPLON (ZALEPLON) [Concomitant]
  8. ALEVE (NAPROXEN SODIUM) [Concomitant]

REACTIONS (12)
  - Hepatic failure [None]
  - Renal failure [None]
  - Unresponsive to stimuli [None]
  - Hepatic encephalopathy [None]
  - Hyponatraemia [None]
  - Dehydration [None]
  - Diarrhoea [None]
  - Haemoptysis [None]
  - Oral pain [None]
  - Glossodynia [None]
  - Tongue ulceration [None]
  - Prerenal failure [None]
